FAERS Safety Report 9485734 (Version 2)
Quarter: 2014Q4

REPORT INFORMATION
  Report Type: Spontaneous
  Country: US (occurrence: None)
  Receive Date: 20130821
  Receipt Date: 20141006
  Transmission Date: 20150529
  Serious: Yes (Life-Threatening, Hospitalization)
  Sender: FDA-Public Use
  Company Number: 1713747-2013-99934

PATIENT
  Age: 52 Year
  Weight: 86.3 kg

DRUGS (7)
  1. 0.9% SODIUM CHLORIDE INJECTION [Suspect]
     Active Substance: SODIUM CHLORIDE
     Indication: HAEMODIALYSIS
     Dosage: UNKNOWN
     Dates: start: 20130802
  2. FRESNIUS K2 HEMODIALYSIS MACHINE [Concomitant]
  3. UNKNOWN FRESNIUS TUBING [Concomitant]
  4. GRANUFLO [Concomitant]
     Active Substance: ACETIC ACID\SODIUM ACETATE
  5. 0.9% SODIUM CHLORIDE INJECTION [Suspect]
     Active Substance: SODIUM CHLORIDE
     Indication: CHRONIC KIDNEY DISEASE
     Dosage: UNKNOWN
     Dates: start: 20130802
  6. UNKNOWN FRESNIUS  DIALYZER [Concomitant]
  7. NATURALYTE [Concomitant]

REACTIONS (6)
  - Dialysis related complication [None]
  - Generalised tonic-clonic seizure [None]
  - Unresponsive to stimuli [None]
  - Muscle spasms [None]
  - Heart rate increased [None]
  - Thrombosis in device [None]

NARRATIVE: CASE EVENT DATE: 20130802
